FAERS Safety Report 13064404 (Version 3)
Quarter: 2017Q1

REPORT INFORMATION
  Report Type: Report from Study
  Country: BR (occurrence: BR)
  Receive Date: 20161227
  Receipt Date: 20170103
  Transmission Date: 20170428
  Serious: Yes (Other)
  Sender: FDA-Public Use
  Company Number: BR-JNJFOC-20161021095

PATIENT
  Sex: Female
  Weight: 68 kg

DRUGS (5)
  1. SIMPONI [Suspect]
     Active Substance: GOLIMUMAB
     Indication: RHEUMATOID ARTHRITIS
     Route: 058
     Dates: start: 20160917
  2. METHOTREXATE. [Concomitant]
     Active Substance: METHOTREXATE
  3. AMOXICILLIN TRIHYDRATE [Suspect]
     Active Substance: AMOXICILLIN
     Indication: PNEUMONIA
     Route: 065
     Dates: start: 201612
  4. PREDNISONE. [Concomitant]
     Active Substance: PREDNISONE
  5. FOLIC ACID. [Concomitant]
     Active Substance: FOLIC ACID

REACTIONS (5)
  - Diarrhoea [Unknown]
  - Pneumonia [Recovering/Resolving]
  - Weight increased [Not Recovered/Not Resolved]
  - Weight decreased [Unknown]
  - Incorrect product storage [Unknown]

NARRATIVE: CASE EVENT DATE: 2016
